FAERS Safety Report 6381484-9 (Version None)
Quarter: 2009Q3

REPORT INFORMATION
  Report Type: 
  Country: None (occurrence: None)
  Receive Date: 20090924
  Receipt Date: 20090915
  Transmission Date: 20100115
  Serious: Yes (Other)
  Sender: FDA-Public Use
  Company Number: CIP09002597

PATIENT
  Age: 63 Year
  Sex: Female

DRUGS (7)
  1. ACTONEL [Suspect]
     Dosage: 150 MG ONCE MONTHLY, ORAL
     Route: 048
  2. ULTRACET [Concomitant]
  3. RELAFEN [Concomitant]
  4. LIPITOIR (ATORVASTATIN CALCIUM) [Concomitant]
  5. VITAMIN D [Concomitant]
  6. CALCIUM (CALCIUM) [Concomitant]
  7. OTHER ANTIHYPERTENSIVES [Concomitant]

REACTIONS (4)
  - MENISCUS LESION [None]
  - OSTEONECROSIS [None]
  - PAIN IN JAW [None]
  - PROCEDURAL PAIN [None]
